FAERS Safety Report 20795915 (Version 3)
Quarter: 2022Q3

REPORT INFORMATION
  Report Type: Spontaneous
  Country: JP (occurrence: JP)
  Receive Date: 20220506
  Receipt Date: 20220705
  Transmission Date: 20221027
  Serious: No
  Sender: FDA-Public Use
  Company Number: JP-JPN-JP2022JPN072024

PATIENT

DRUGS (8)
  1. SOTROVIMAB [Suspect]
     Active Substance: SOTROVIMAB
     Indication: Coronavirus test positive
     Dosage: 500 MG
     Route: 041
     Dates: start: 20220124, end: 20220124
  2. CETIRIZINE [Suspect]
     Active Substance: CETIRIZINE HYDROCHLORIDE
     Dosage: 10 MG/DAY
     Route: 048
     Dates: start: 20211108
  3. DORAL [Suspect]
     Active Substance: QUAZEPAM
     Dosage: 7.5 MG/DAY
     Route: 048
     Dates: start: 20211025
  4. HALCION [Suspect]
     Active Substance: TRIAZOLAM
     Dosage: 0.25 MG/DAY
     Route: 048
     Dates: start: 20211025
  5. FERROUS SULFATE [Suspect]
     Active Substance: FERROUS SULFATE
     Dosage: 210 MG/DAY
     Route: 048
     Dates: start: 20220122
  6. DOMIPHEN BROMIDE [Suspect]
     Active Substance: DOMIPHEN BROMIDE
     Dosage: 4 DF/DAY
     Dates: start: 20220123
  7. TRANEXAMIC ACID [Suspect]
     Active Substance: TRANEXAMIC ACID
     Dosage: UNK, AS NEEDED
     Route: 048
     Dates: start: 20220124
  8. MAGNESIUM OXIDE [Suspect]
     Active Substance: MAGNESIUM OXIDE
     Dosage: 990 MG/DAY
     Route: 048
     Dates: start: 20220125

REACTIONS (2)
  - Exposure during pregnancy [Unknown]
  - Live birth [Unknown]
